FAERS Safety Report 23406254 (Version 1)
Quarter: 2024Q1

REPORT INFORMATION
  Report Type: Spontaneous
  Country: US (occurrence: US)
  Receive Date: 20240116
  Receipt Date: 20240116
  Transmission Date: 20240409
  Serious: No
  Sender: FDA-Public Use
  Company Number: US-PFIZER INC-202400010648

PATIENT
  Age: 64 Year
  Sex: Female

DRUGS (4)
  1. PAXLOVID [Suspect]
     Active Substance: NIRMATRELVIR\RITONAVIR
     Indication: COVID-19 treatment
     Dosage: UNK
     Dates: start: 20230919, end: 20230923
  2. ESTROGENS [Concomitant]
     Active Substance: ESTROGENS
     Dosage: UNK
     Dates: start: 20210702
  3. ESTROGENS [Concomitant]
     Active Substance: ESTROGENS
     Dates: start: 199004
  4. LEVOTHYROXINE [Concomitant]
     Active Substance: LEVOTHYROXINE
     Dosage: UNK
     Dates: start: 199004

REACTIONS (3)
  - Cardiac disorder [Recovering/Resolving]
  - Fatigue [Recovering/Resolving]
  - Nervous system disorder [Recovering/Resolving]

NARRATIVE: CASE EVENT DATE: 20230924
